FAERS Safety Report 24169543 (Version 1)
Quarter: 2024Q3

REPORT INFORMATION
  Report Type: Spontaneous
  Country: CA (occurrence: CA)
  Receive Date: 20240802
  Receipt Date: 20240802
  Transmission Date: 20241017
  Serious: Yes (Hospitalization, Other)
  Sender: B BRAUN
  Company Number: CA-B.Braun Medical Inc.-2159938

PATIENT
  Sex: Female

DRUGS (61)
  1. ACETAMINOPHEN [Suspect]
     Active Substance: ACETAMINOPHEN
  2. METRONIDAZOLE [Suspect]
     Active Substance: METRONIDAZOLE
  3. VALSARTAN [Concomitant]
     Active Substance: VALSARTAN
  4. BIAXIN [Concomitant]
     Active Substance: CLARITHROMYCIN
  5. ZINC OXIDE [Suspect]
     Active Substance: ZINC OXIDE
  6. ZEAXANTHIN [Suspect]
     Active Substance: ZEAXANTHIN
  7. XANTOFYL PALMITATE [Suspect]
     Active Substance: XANTOFYL PALMITATE
  8. VITAMIN D3 [Suspect]
     Active Substance: CHOLECALCIFEROL
  9. TRIAMCINOLONE ACETONIDE [Suspect]
     Active Substance: TRIAMCINOLONE ACETONIDE
  10. SULFAMETHOXAZOLE\TRIMETHOPRIM [Suspect]
     Active Substance: SULFAMETHOXAZOLE\TRIMETHOPRIM
  11. CARBOXYMETHYLCELLULOSE SODIUM [Suspect]
     Active Substance: CARBOXYMETHYLCELLULOSE SODIUM
  12. SODIUM BICARBONATE\SODIUM CHLORIDE [Suspect]
     Active Substance: SODIUM BICARBONATE\SODIUM CHLORIDE
  13. PULMICORT TURBUHALER [Suspect]
     Active Substance: BUDESONIDE
  14. PREGABALIN [Suspect]
     Active Substance: PREGABALIN
  15. PREDNISONE [Suspect]
     Active Substance: PREDNISONE
  16. PANTOPRAZOLE [Suspect]
     Active Substance: PANTOPRAZOLE
  17. NICOTINE POLACRILEX [Suspect]
     Active Substance: NICOTINE
  18. NICOTINE [Suspect]
     Active Substance: NICOTINE
  19. NICODERM CQ [Suspect]
     Active Substance: NICOTINE
  20. NADOLOL [Suspect]
     Active Substance: NADOLOL
  21. MUPIROCIN CALCIUM [Suspect]
     Active Substance: MUPIROCIN CALCIUM
  22. MUPIROCIN [Suspect]
     Active Substance: MUPIROCIN
  23. MORPHINE SULFATE [Suspect]
     Active Substance: MORPHINE SULFATE
  24. MESALAMINE [Suspect]
     Active Substance: MESALAMINE
  25. MAGNESIUM OXIDE [Suspect]
     Active Substance: MAGNESIUM OXIDE
  26. MAGNESIUM SULFATE, UNSPECIFIED\POLYETHYLENE GLYCOL 3350\POTASSIUM CHLO [Suspect]
     Active Substance: MAGNESIUM SULFATE, UNSPECIFIED\POLYETHYLENE GLYCOL 3350\POTASSIUM CHLORIDE\POTASSIUM SULFATE\SODIUM
  27. LOPERAMIDE HYDROCHLORIDE [Suspect]
     Active Substance: LOPERAMIDE HYDROCHLORIDE
  28. IMODIUM [Suspect]
     Active Substance: LOPERAMIDE HYDROCHLORIDE
  29. HYDROMORPHONE HYDROCHLORIDE [Suspect]
     Active Substance: HYDROMORPHONE HYDROCHLORIDE
  30. HYDROCHLOROTHIAZIDE [Suspect]
     Active Substance: HYDROCHLOROTHIAZIDE
  31. HUMIRA [Suspect]
     Active Substance: ADALIMUMAB
  32. GRAMICIDIN\NEOMYCIN SULFATE\POLYMYXIN B SULFATE [Suspect]
     Active Substance: GRAMICIDIN\NEOMYCIN SULFATE\POLYMYXIN B SULFATE
  33. GLYCERIN [Suspect]
     Active Substance: GLYCERIN
  34. FLUTICASONE PROPIONATE [Suspect]
     Active Substance: FLUTICASONE PROPIONATE
  35. FLUTICASONE FUROATE [Suspect]
     Active Substance: FLUTICASONE FUROATE
  36. FLOVENT [Suspect]
     Active Substance: FLUTICASONE PROPIONATE
  37. ERTAPENEM SODIUM [Suspect]
     Active Substance: ERTAPENEM SODIUM
  38. ERGOCALCIFEROL [Suspect]
     Active Substance: ERGOCALCIFEROL
  39. DIPHENHYDRAMINE HYDROCHLORIDE [Suspect]
     Active Substance: DIPHENHYDRAMINE HYDROCHLORIDE
  40. DIPHENHYDRAMINE [Suspect]
     Active Substance: DIPHENHYDRAMINE
  41. DILAUDID [Suspect]
     Active Substance: HYDROMORPHONE HYDROCHLORIDE
  42. DESONIDE [Suspect]
     Active Substance: DESONIDE
  43. CUPRIC OXIDE [Suspect]
     Active Substance: CUPRIC OXIDE
  44. CLOTRIMAZOLE [Suspect]
     Active Substance: CLOTRIMAZOLE
  45. CLARITHROMYCIN [Suspect]
     Active Substance: CLARITHROMYCIN
  46. CHOLECALCIFEROL [Suspect]
     Active Substance: CHOLECALCIFEROL
  47. CETIRIZINE HYDROCHLORIDE [Suspect]
     Active Substance: CETIRIZINE HYDROCHLORIDE
  48. CALCIUM CARBONATE\CHOLECALCIFEROL [Suspect]
     Active Substance: CALCIUM CARBONATE\CHOLECALCIFEROL
  49. CALCIUM CARBONATE [Suspect]
     Active Substance: CALCIUM CARBONATE
  50. BUDESONIDE [Suspect]
     Active Substance: BUDESONIDE
  51. BISACODYL [Suspect]
     Active Substance: BISACODYL
  52. BETAMETHASONE VALERATE [Suspect]
     Active Substance: BETAMETHASONE VALERATE
  53. BETAMETHASONE DIPROPIONATE [Suspect]
     Active Substance: BETAMETHASONE DIPROPIONATE
  54. AZITHROMYCIN [Suspect]
     Active Substance: AZITHROMYCIN
  55. ATROPINE SULFATE\DIPHENOXYLATE HYDROCHLORIDE [Suspect]
     Active Substance: ATROPINE SULFATE\DIPHENOXYLATE HYDROCHLORIDE
  56. ATORVASTATIN CALCIUM [Suspect]
     Active Substance: ATORVASTATIN CALCIUM
  57. AMOXICILLIN TRIHYDRATE [Suspect]
     Active Substance: AMOXICILLIN
  58. ALPRAZOLAM [Suspect]
     Active Substance: ALPRAZOLAM
  59. ADALIMUMAB [Suspect]
     Active Substance: ADALIMUMAB
  60. SODIUM CHLORIDE [Suspect]
     Active Substance: SODIUM CHLORIDE
  61. MAGNESIUM SULFATE [Suspect]
     Active Substance: MAGNESIUM SULFATE\MAGNESIUM SULFATE HEPTAHYDRATE

REACTIONS (2)
  - Macular degeneration [Unknown]
  - Drug ineffective [Unknown]
